FAERS Safety Report 8462289-1 (Version None)
Quarter: 2012Q2

REPORT INFORMATION
  Report Type: 
  Country: None (occurrence: None)
  Receive Date: 20120619
  Receipt Date: 20120619
  Transmission Date: 20120825
  Serious: Yes (Other)
  Sender: FDA-Public Use
  Company Number: None

PATIENT
  Age: 29 Year
  Sex: Male
  Weight: 79.3795 kg

DRUGS (1)
  1. OXYCONTIN [Suspect]
     Indication: DIABETIC NEUROPATHY
     Dosage: 1X 20 MG PILL 3 TIMES A DAY PO
     Route: 048
     Dates: start: 20100512

REACTIONS (10)
  - PRODUCT GEL FORMATION [None]
  - FOREIGN BODY [None]
  - QUALITY OF LIFE DECREASED [None]
  - PRODUCT FORMULATION ISSUE [None]
  - VOMITING [None]
  - ABDOMINAL DISCOMFORT [None]
  - DRUG EFFECT DECREASED [None]
  - DRUG EFFECT DELAYED [None]
  - PRODUCT QUALITY ISSUE [None]
  - GASTROINTESTINAL DISORDER [None]
